FAERS Safety Report 14347951 (Version 2)
Quarter: 2019Q4

REPORT INFORMATION
  Report Type: Spontaneous
  Country: FR (occurrence: FR)
  Receive Date: 20180103
  Receipt Date: 20191205
  Transmission Date: 20200122
  Serious: Yes (Other)
  Sender: FDA-Public Use
  Company Number: FR-MYLANLABS-2018M1000048

PATIENT
  Sex: Female

DRUGS (3)
  1. COLESTYRAMINE [Suspect]
     Active Substance: CHOLESTYRAMINE
     Indication: PRODUCT USED FOR UNKNOWN INDICATION
     Dosage: UNK
  2. URSODEOXYCHOLIC ACID [Suspect]
     Active Substance: URSODIOL
     Indication: CHOLESTASIS OF PREGNANCY
     Dosage: 1000 MILLIGRAM, QD
     Route: 065
  3. HYDROXYZINE [Suspect]
     Active Substance: HYDROXYZINE HYDROCHLORIDE
     Indication: PRURITUS
     Dosage: UNK

REACTIONS (7)
  - Foetal death [Recovered/Resolved]
  - Pruritus [Unknown]
  - Product use in unapproved indication [Recovered/Resolved]
  - Exposure during pregnancy [Recovered/Resolved]
  - Intentional product misuse [Unknown]
  - Jaundice [Unknown]
  - Off label use [Unknown]
